FAERS Safety Report 7269537-4 (Version None)
Quarter: 2011Q1

REPORT INFORMATION
  Report Type: 
  Country: None (occurrence: None)
  Receive Date: 20110202
  Receipt Date: 20110119
  Transmission Date: 20110831
  Serious: Yes (Hospitalization)
  Sender: FDA-Public Use
  Company Number: US-ELI_LILLY_AND_COMPANY-US201012005091

PATIENT
  Age: 67 Year
  Sex: Female

DRUGS (11)
  1. URSODIOL [Concomitant]
     Dosage: 250 MG, UNK
  2. RITALIN [Concomitant]
     Dosage: 20 MG, UNK
  3. OMEPRAZOLE [Concomitant]
  4. NASACORT AQ [Concomitant]
  5. LOVAZA [Concomitant]
     Dosage: 1000 MG, UNK
  6. LIBRAX [Concomitant]
     Dosage: 2.5 MG, UNK
  7. ANTIBIOTICS [Concomitant]
  8. CITRACAL + D [Concomitant]
  9. MULTI-VITAMIN [Concomitant]
  10. FORTEO [Suspect]
     Indication: OSTEOPOROSIS
     Dosage: 20 UG, DAILY (1/D)
     Route: 058
     Dates: start: 20100601
  11. ZOLOFT [Concomitant]
     Dosage: 50 MG, UNK

REACTIONS (4)
  - POST PROCEDURAL INFECTION [None]
  - BLADDER DISORDER [None]
  - RESTLESS LEGS SYNDROME [None]
  - GROWING PAINS [None]
